FAERS Safety Report 7672019-9 (Version None)
Quarter: 2011Q3

REPORT INFORMATION
  Report Type: 
  Country: None (occurrence: None)
  Receive Date: 20110809
  Receipt Date: 20110801
  Transmission Date: 20111222
  Serious: Yes (Hospitalization)
  Sender: FDA-Public Use
  Company Number: US-BRACCO-006580

PATIENT
  Sex: Female
  Weight: 63 kg

DRUGS (3)
  1. MULTIHANCE [Suspect]
     Indication: LEIOMYOMA
     Route: 042
     Dates: start: 20110726, end: 20110726
  2. MULTIHANCE [Suspect]
     Indication: NUCLEAR MAGNETIC RESONANCE IMAGING
     Route: 042
     Dates: start: 20110726, end: 20110726
  3. MULTIHANCE [Suspect]
     Indication: PREOPERATIVE CARE
     Route: 042
     Dates: start: 20110726, end: 20110726

REACTIONS (4)
  - APNOEA [None]
  - DEPRESSED LEVEL OF CONSCIOUSNESS [None]
  - MENTAL STATUS CHANGES [None]
  - SYNCOPE [None]
